FAERS Safety Report 17136057 (Version 1)
Quarter: 2019Q4

REPORT INFORMATION
  Report Type: Spontaneous
  Country: JP (occurrence: JP)
  Receive Date: 20191210
  Receipt Date: 20191210
  Transmission Date: 20200122
  Serious: Yes (Other)
  Sender: FDA-Public Use
  Company Number: JP-VALIDUS PHARMACEUTICALS LLC-JP-2019VAL000825

PATIENT

DRUGS (4)
  1. LASIX [Suspect]
     Active Substance: FUROSEMIDE
     Indication: WEIGHT INCREASED
  2. SPIRONOLACTONE. [Concomitant]
     Active Substance: SPIRONOLACTONE
     Indication: OEDEMA PERIPHERAL
     Dosage: UNK
  3. LASIX [Suspect]
     Active Substance: FUROSEMIDE
     Indication: OEDEMA PERIPHERAL
     Dosage: UNK
     Route: 065
  4. SPIRONOLACTONE. [Concomitant]
     Active Substance: SPIRONOLACTONE
     Indication: WEIGHT INCREASED

REACTIONS (9)
  - Petechiae [Recovered/Resolved]
  - Purpura [Recovered/Resolved]
  - Rheumatoid factor increased [Unknown]
  - Systemic scleroderma [Unknown]
  - Pruritus [Recovering/Resolving]
  - Blood immunoglobulin A increased [Unknown]
  - Hypersensitivity vasculitis [Unknown]
  - Antibody test abnormal [Unknown]
  - Sclerema [Recovering/Resolving]
